FAERS Safety Report 20948381 (Version 2)
Quarter: 2022Q3

REPORT INFORMATION
  Report Type: Spontaneous
  Country: FR (occurrence: FR)
  Receive Date: 20220611
  Receipt Date: 20220818
  Transmission Date: 20221026
  Serious: Yes (Death, Life-Threatening)
  Sender: FDA-Public Use
  Company Number: None

PATIENT
  Age: 66 Year
  Sex: Female
  Weight: 60 kg

DRUGS (10)
  1. METFORMIN [Suspect]
     Active Substance: METFORMIN HYDROCHLORIDE
     Indication: Type 2 diabetes mellitus
     Dosage: THERAPY START DATE  : ASKU
     Route: 048
     Dates: end: 20220517
  2. FELDENE [Concomitant]
     Active Substance: PIROXICAM
     Indication: Product used for unknown indication
  3. GLICLAZIDE [Concomitant]
     Active Substance: GLICLAZIDE
     Indication: Product used for unknown indication
     Dosage: 60 MG, MODIFIED-RELEASE SCORED TABLET
  4. ATENOLOL [Concomitant]
     Active Substance: ATENOLOL
     Indication: Product used for unknown indication
  5. EZETIMIBE\SIMVASTATIN [Concomitant]
     Active Substance: EZETIMIBE\SIMVASTATIN
     Indication: Product used for unknown indication
     Dosage: 10 MG/40 MG
  6. VICTOZA [Concomitant]
     Active Substance: LIRAGLUTIDE
     Indication: Product used for unknown indication
  7. OMEPRAZOLE [Concomitant]
     Active Substance: OMEPRAZOLE
     Indication: Product used for unknown indication
  8. HYDROCHLOROTHIAZIDE\IRBESARTAN [Concomitant]
     Active Substance: HYDROCHLOROTHIAZIDE\IRBESARTAN
     Indication: Product used for unknown indication
     Dosage: 300 MG/25 MG
  9. REPAGLINIDE [Concomitant]
     Active Substance: REPAGLINIDE
     Indication: Product used for unknown indication
  10. ALDOMET [Concomitant]
     Active Substance: METHYLDOPA
     Indication: Product used for unknown indication

REACTIONS (5)
  - Overdose [Fatal]
  - Drug level increased [Fatal]
  - Coma [Fatal]
  - Lactic acidosis [Fatal]
  - Pancreatitis acute [Fatal]

NARRATIVE: CASE EVENT DATE: 20220517
